FAERS Safety Report 5139768-8 (Version None)
Quarter: 2006Q4

REPORT INFORMATION
  Report Type: 
  Country: None (occurrence: None)
  Receive Date: 20061024
  Receipt Date: 20061009
  Transmission Date: 20070319
  Serious: Yes (Death, Other)
  Sender: FDA-Public Use
  Company Number: 2006BH013757

PATIENT
  Age: 63 Year
  Sex: Male
  Weight: 55 kg

DRUGS (8)
  1. EXTRANEAL [Suspect]
     Indication: PERITONEAL DIALYSIS
     Dosage: IP
     Route: 033
     Dates: start: 20061001, end: 20061002
  2. LANSOR [Concomitant]
  3. ADALAT [Concomitant]
  4. COLCHICINE [Concomitant]
  5. EPOGEN [Concomitant]
  6. CALCIUM [Concomitant]
  7. NUTRINEAL PD4 [Concomitant]
  8. DIANEAL [Concomitant]

REACTIONS (5)
  - ABDOMINAL PAIN UPPER [None]
  - DIARRHOEA [None]
  - NAUSEA [None]
  - POST PROCEDURAL COMPLICATION [None]
  - VOMITING [None]
